FAERS Safety Report 8337020-0 (Version None)
Quarter: 2012Q2

REPORT INFORMATION
  Report Type: 
  Country: None (occurrence: None)
  Receive Date: 20120501
  Receipt Date: 20120423
  Transmission Date: 20120825
  Serious: Yes (Hospitalization)
  Sender: FDA-Public Use
  Company Number: 2012040153

PATIENT
  Age: 39 Year
  Sex: Female

DRUGS (4)
  1. ZOLPIDEM [Suspect]
     Dosage: SEE IMAGE
  2. VALPROATE (VALPROATE) [Concomitant]
  3. FLUOXETINE [Concomitant]
  4. QUETIAPINE FUMARATE [Concomitant]

REACTIONS (6)
  - WITHDRAWAL SYNDROME [None]
  - PREGNANCY [None]
  - MATERNAL EXPOSURE DURING PREGNANCY [None]
  - EXPOSURE DURING BREAST FEEDING [None]
  - DRUG DEPENDENCE [None]
  - INCORRECT DOSE ADMINISTERED [None]
